FAERS Safety Report 8431487-5 (Version None)
Quarter: 2012Q2

REPORT INFORMATION
  Report Type: 
  Country: None (occurrence: None)
  Receive Date: 20120607
  Receipt Date: 20120607
  Transmission Date: 20120825
  Serious: Yes (Life-Threatening, Hospitalization)
  Sender: FDA-Public Use
  Company Number: None

PATIENT
  Age: 77 Year
  Sex: Female
  Weight: 85.2762 kg

DRUGS (2)
  1. BENICAR HCT [Suspect]
     Indication: HYPERTENSION
     Dosage: TAKE 1 DAILY HIGHER DOSAGE 4/13/12
     Dates: start: 20120413, end: 20120504
  2. BENICAR HCT [Suspect]
     Dosage: 1 DAILY LOWER DOSE ABOUT 3 YRS

REACTIONS (8)
  - HEART RATE DECREASED [None]
  - DIZZINESS [None]
  - ASTHENIA [None]
  - BLOOD PRESSURE INCREASED [None]
  - VISION BLURRED [None]
  - NAUSEA [None]
  - CONFUSIONAL STATE [None]
  - CHEST DISCOMFORT [None]
